FAERS Safety Report 23566061 (Version 5)
Quarter: 2024Q1

REPORT INFORMATION
  Report Type: Other
  Country: DE (occurrence: None)
  Receive Date: 20240226
  Receipt Date: 20240311
  Transmission Date: 20240410
  Serious: No
  Sender: FDA-Public Use
  Company Number: DE-ROCHE-3454594

PATIENT
  Age: 35 Year
  Sex: Male

DRUGS (10)
  1. OCRELIZUMAB [Suspect]
     Active Substance: OCRELIZUMAB
     Indication: Relapsing multiple sclerosis
     Route: 042
     Dates: start: 20231017
  2. METHYLPREDNISOLONE [Suspect]
     Active Substance: METHYLPREDNISOLONE
     Indication: Prophylaxis
     Route: 042
     Dates: start: 20231031, end: 20231031
  3. CHOLECALCIFEROL [Concomitant]
     Active Substance: CHOLECALCIFEROL
     Indication: Prophylaxis
     Dosage: DOSE: 1000?DOSE FREQUENCY: QD (EVERY DAY)
     Route: 048
     Dates: start: 202306
  4. TWINRIX [Concomitant]
     Active Substance: HEPATITIS A VIRUS STRAIN HM175 ANTIGEN (FORMALDEHYDE INACTIVATED)\HEPATITIS B VIRUS SUBTYPE ADW2 HBS
     Dosage: DOSE: UN?DOSE FREQUENCY: OTHER
     Route: 065
     Dates: start: 20230523, end: 20230523
  5. METHYLPREDNISOLUT [Concomitant]
     Dosage: DOSE FREQUENCY: ONCE
     Route: 042
     Dates: start: 20231017, end: 20231017
  6. METHYLPREDNISOLUT [Concomitant]
     Dosage: DOSE FREQUENCY: ONCE
     Route: 042
     Dates: start: 20231031, end: 20231031
  7. CLEMASTINE FUMARATE [Concomitant]
     Active Substance: CLEMASTINE FUMARATE
     Indication: Prophylaxis
     Dosage: DOSE FREQUENCY: ONCE
     Route: 042
     Dates: start: 20231017, end: 20231017
  8. CLEMASTINE FUMARATE [Concomitant]
     Active Substance: CLEMASTINE FUMARATE
     Dosage: DOSE FREQUENCY: ONCE
     Route: 042
     Dates: start: 20231031, end: 20231031
  9. ACETAMINOPHEN [Concomitant]
     Active Substance: ACETAMINOPHEN
     Indication: Prophylaxis
     Route: 048
     Dates: start: 20231017, end: 20231017
  10. ACETAMINOPHEN [Concomitant]
     Active Substance: ACETAMINOPHEN
     Route: 048
     Dates: start: 20231031, end: 20231031

REACTIONS (7)
  - Lymphopenia [Not Recovered/Not Resolved]
  - Sinusitis [Recovered/Resolved]
  - Bronchitis [Recovered/Resolved]
  - Fungal infection [Recovered/Resolved]
  - Pruritus [Recovered/Resolved]
  - Food craving [Recovered/Resolved]
  - Leukopenia [Unknown]

NARRATIVE: CASE EVENT DATE: 20231017
